FAERS Safety Report 16354114 (Version 2)
Quarter: 2019Q2

REPORT INFORMATION
  Report Type: Report from Study
  Country: US (occurrence: US)
  Receive Date: 20190524
  Receipt Date: 20190626
  Transmission Date: 20190711
  Serious: Yes (Hospitalization, Other)
  Sender: FDA-Public Use
  Company Number: US-ACTELION-A-US2019-187386

PATIENT
  Sex: Female
  Weight: 117.91 kg

DRUGS (2)
  1. OFEV [Concomitant]
     Active Substance: NINTEDANIB
  2. TRACLEER [Suspect]
     Active Substance: BOSENTAN
     Indication: PULMONARY ARTERIAL HYPERTENSION
     Dosage: 125 MG, BID
     Route: 048

REACTIONS (6)
  - Lung neoplasm malignant [Unknown]
  - Heart rate increased [Unknown]
  - Pericardial effusion [Unknown]
  - Malaise [Unknown]
  - Pericardial drainage [Unknown]
  - Sciatica [Unknown]
